FAERS Safety Report 7789878-1 (Version None)
Quarter: 2011Q3

REPORT INFORMATION
  Report Type: 
  Country: None (occurrence: None)
  Receive Date: 20110930
  Receipt Date: 20110304
  Transmission Date: 20111222
  Serious: No
  Sender: FDA-Public Use
  Company Number: US-ASTRAZENECA-2011SE12244

PATIENT
  Age: 71 Year
  Sex: Female
  Weight: 67.1 kg

DRUGS (2)
  1. FAMARA [Concomitant]
  2. ARIMIDEX [Suspect]
     Indication: BREAST CANCER
     Route: 048

REACTIONS (2)
  - TINNITUS [None]
  - MUSCULAR WEAKNESS [None]
